FAERS Safety Report 9358342 (Version 1)
Quarter: 2013Q2

REPORT INFORMATION
  Report Type: Report from Study
  Country: AU (occurrence: AU)
  Receive Date: 20130620
  Receipt Date: 20130620
  Transmission Date: 20140414
  Serious: Yes (Hospitalization)
  Sender: FDA-Public Use
  Company Number: PHHY2013AU051327

PATIENT
  Age: 53 Year
  Sex: Male

DRUGS (2)
  1. SANDOSTATIN LAR [Suspect]
     Indication: CARCINOID SYNDROME
     Dosage: 30 MG + 20 MG
     Route: 030
     Dates: start: 20130422
  2. SANDOSTATIN LAR [Suspect]
     Dosage: 30 MG + 20 MG
     Route: 030
     Dates: start: 20130520

REACTIONS (3)
  - Chest pain [Recovered/Resolved]
  - Hypoaesthesia [Recovered/Resolved]
  - Pain in extremity [Recovering/Resolving]
